FAERS Safety Report 12640865 (Version 1)
Quarter: 2016Q3

REPORT INFORMATION
  Report Type: Spontaneous
  Country: US (occurrence: US)
  Receive Date: 20160810
  Receipt Date: 20160810
  Transmission Date: 20161109
  Serious: No
  Sender: FDA-Public Use
  Company Number: US-BEH-2016072099

PATIENT
  Sex: Female
  Weight: 69.39 kg

DRUGS (25)
  1. GUAIFENESIN/CODEINE [Concomitant]
     Active Substance: CODEINE PHOSPHATE\GUAIFENESIN
  2. BUPROPION. [Concomitant]
     Active Substance: BUPROPION
  3. HIZENTRA [Suspect]
     Active Substance: HUMAN IMMUNOGLOBULIN G
     Dosage: UNK
     Route: 058
  4. HIZENTRA [Suspect]
     Active Substance: HUMAN IMMUNOGLOBULIN G
     Indication: HYPOGAMMAGLOBULINAEMIA
     Dosage: UNK
     Route: 058
  5. PREDNISONE. [Concomitant]
     Active Substance: PREDNISONE
  6. METOPROLOL. [Concomitant]
     Active Substance: METOPROLOL
  7. ALBUTEROL                          /00139501/ [Concomitant]
     Active Substance: ALBUTEROL
  8. ROBITUSSIN COUGH AND COLD D [Concomitant]
     Active Substance: DEXTROMETHORPHAN HYDROBROMIDE\GUAIFENESIN\PSEUDOEPHEDRINE HYDROCHLORIDE
  9. POTASSIUM [Concomitant]
     Active Substance: POTASSIUM
  10. MUCINEX D [Concomitant]
     Active Substance: GUAIFENESIN\PSEUDOEPHEDRINE HYDROCHLORIDE
  11. DIPHENHYDRAMINE. [Concomitant]
     Active Substance: DIPHENHYDRAMINE
  12. LIDOCAINE/PRILOCAINE [Concomitant]
     Active Substance: LIDOCAINE\PRILOCAINE
  13. EPIPEN [Concomitant]
     Active Substance: EPINEPHRINE
  14. METFORMIN [Concomitant]
     Active Substance: METFORMIN HYDROCHLORIDE
  15. ADVAIR HFA [Concomitant]
     Active Substance: FLUTICASONE PROPIONATE\SALMETEROL XINAFOATE
  16. LEVOTHYROXINE. [Concomitant]
     Active Substance: LEVOTHYROXINE
  17. HIZENTRA [Suspect]
     Active Substance: HUMAN IMMUNOGLOBULIN G
     Indication: IMMUNODEFICIENCY COMMON VARIABLE
     Dosage: UNK
     Route: 058
     Dates: start: 20151228
  18. FOLIC ACID. [Concomitant]
     Active Substance: FOLIC ACID
  19. MULTIVITAMIN A-Z [Concomitant]
  20. ASPIRIN. [Concomitant]
     Active Substance: ASPIRIN
  21. ERYTHROMYCIN. [Concomitant]
     Active Substance: ERYTHROMYCIN
  22. IPRATROPIUM [Concomitant]
     Active Substance: IPRATROPIUM
  23. HIZENTRA [Suspect]
     Active Substance: HUMAN IMMUNOGLOBULIN G
     Dosage: 11 G, QW
     Route: 058
  24. LMX                                /00033401/ [Concomitant]
  25. PRAVASTATIN. [Concomitant]
     Active Substance: PRAVASTATIN

REACTIONS (1)
  - Bronchitis [Unknown]
